FAERS Safety Report 24915345 (Version 5)
Quarter: 2025Q2

REPORT INFORMATION
  Report Type: Report from Study
  Country: US (occurrence: US)
  Receive Date: 20250203
  Receipt Date: 20250603
  Transmission Date: 20250716
  Serious: Yes (Other)
  Sender: TAKEDA
  Company Number: US-TAKEDA-2025TUS009873

PATIENT
  Sex: Female
  Weight: 56 kg

DRUGS (23)
  1. HUMAN IMMUNOGLOBULIN G [Suspect]
     Active Substance: HUMAN IMMUNOGLOBULIN G
     Indication: IgG deficiency
  2. HUMAN IMMUNOGLOBULIN G [Suspect]
     Active Substance: HUMAN IMMUNOGLOBULIN G
     Dosage: 20 GRAM, Q4WEEKS
     Dates: start: 20250210
  3. HUMAN IMMUNOGLOBULIN G [Suspect]
     Active Substance: HUMAN IMMUNOGLOBULIN G
     Dosage: 20 GRAM, Q4WEEKS
  4. ACETAMINOPHEN [Concomitant]
     Active Substance: ACETAMINOPHEN
  5. EPINEPHRINE [Concomitant]
     Active Substance: EPINEPHRINE
  6. HYDROCORTISONE [Concomitant]
     Active Substance: HYDROCORTISONE
  7. SYSTANE (HYPROMELLOSE 2910 (4000 MPA.S)) [Concomitant]
     Active Substance: HYPROMELLOSE 2910 (4000 MPA.S)
  8. AQUAPHOR [Concomitant]
     Active Substance: PETROLATUM
  9. TACROLIMUS [Concomitant]
     Active Substance: TACROLIMUS
  10. ONDANSETRON [Concomitant]
     Active Substance: ONDANSETRON
  11. MESTINON [Concomitant]
     Active Substance: PYRIDOSTIGMINE BROMIDE
  12. MELATONIN [Concomitant]
     Active Substance: MELATONIN
  13. Artificial tears [Concomitant]
  14. DIPHENHYDRAMINE HYDROCHLORIDE [Concomitant]
     Active Substance: DIPHENHYDRAMINE HYDROCHLORIDE
  15. Lmx [Concomitant]
  16. LORATADINE [Concomitant]
     Active Substance: LORATADINE
  17. GENTEAL TEARS (MILD) [Concomitant]
     Active Substance: DEXTRAN 70\HYPROMELLOSE 2910 (4000 MPA.S)
  18. LIDOCAINE [Concomitant]
     Active Substance: LIDOCAINE
  19. SODIUM CHLORIDE [Concomitant]
     Active Substance: SODIUM CHLORIDE
  20. CETIRIZINE [Concomitant]
     Active Substance: CETIRIZINE HYDROCHLORIDE
  21. ZYRTEC [Concomitant]
     Active Substance: CETIRIZINE HYDROCHLORIDE
  22. ONDANSETRON [Concomitant]
     Active Substance: ONDANSETRON
  23. CALCIUM\VITAMIN D [Concomitant]
     Active Substance: CALCIUM\VITAMIN D

REACTIONS (6)
  - Blindness [Unknown]
  - Product use issue [Unknown]
  - Insurance issue [Unknown]
  - Dizziness [Not Recovered/Not Resolved]
  - Nausea [Unknown]
  - Fatigue [Unknown]
